FAERS Safety Report 13559393 (Version 1)
Quarter: 2017Q2

REPORT INFORMATION
  Report Type: Spontaneous
  Country: LT (occurrence: LT)
  Receive Date: 20170518
  Receipt Date: 20170518
  Transmission Date: 20170830
  Serious: Yes (Hospitalization, Other)
  Sender: FDA-Public Use
  Company Number: LT-MYLANLABS-2017M1029258

PATIENT

DRUGS (4)
  1. VALPROIC ACID. [Suspect]
     Active Substance: VALPROIC ACID
     Dosage: TOOK 40-45G FOR SUICIDE ATTEMPT
     Route: 065
  2. LAMOTRIGINE. [Suspect]
     Active Substance: LAMOTRIGINE
     Dosage: TOOK APPROXIMATELY 700MG FOR SUICIDE ATTEMPT
     Route: 065
  3. LAMOTRIGINE. [Suspect]
     Active Substance: LAMOTRIGINE
     Indication: EPILEPSY
     Route: 065
  4. VALPROIC ACID. [Suspect]
     Active Substance: VALPROIC ACID
     Indication: EPILEPSY
     Route: 065

REACTIONS (6)
  - Seizure [Recovered/Resolved]
  - Intentional overdose [Unknown]
  - Hypocalcaemia [Unknown]
  - Vitamin D deficiency [Unknown]
  - Drug ineffective [Recovered/Resolved]
  - Suicide attempt [Unknown]
